FAERS Safety Report 7064646-7 (Version None)
Quarter: 2010Q4

REPORT INFORMATION
  Report Type: 
  Country: None (occurrence: None)
  Receive Date: 20101022
  Receipt Date: 20101022
  Transmission Date: 20110411
  Serious: No
  Sender: FDA-Public Use
  Company Number: None

PATIENT
  Sex: Female
  Weight: 58.0604 kg

DRUGS (1)
  1. KENALOG [Suspect]
     Indication: PAIN
     Dosage: 80MG ONCE EPIDURAL
     Route: 008
     Dates: start: 20090128, end: 20090128

REACTIONS (8)
  - BALANCE DISORDER [None]
  - BONE PAIN [None]
  - DECREASED ACTIVITY [None]
  - DYSSTASIA [None]
  - FLUSHING [None]
  - HEADACHE [None]
  - MUSCULAR WEAKNESS [None]
  - TEMPERATURE REGULATION DISORDER [None]
